FAERS Safety Report 5779430-1 (Version None)
Quarter: 2008Q2

REPORT INFORMATION
  Report Type: 
  Country: None (occurrence: None)
  Receive Date: 20080619
  Receipt Date: 20080306
  Transmission Date: 20081010
  Serious: No
  Sender: FDA-Public Use
  Company Number: US-ASTRAZENECA-2008UW04724

PATIENT
  Age: 98 Year
  Sex: Male

DRUGS (4)
  1. ATACAND [Suspect]
     Route: 048
  2. TOPROL-XL [Concomitant]
  3. LIPITOR [Concomitant]
  4. PLAVIX [Concomitant]

REACTIONS (2)
  - DIZZINESS [None]
  - FEELING ABNORMAL [None]
